FAERS Safety Report 6307480-5 (Version None)
Quarter: 2009Q3

REPORT INFORMATION
  Report Type: 
  Country: None (occurrence: None)
  Receive Date: 20090813
  Receipt Date: 20090807
  Transmission Date: 20100115
  Serious: Yes (Life-Threatening, Hospitalization)
  Sender: FDA-Public Use
  Company Number: CH-ROCHE-649083

PATIENT
  Age: 79 Year
  Sex: Female

DRUGS (17)
  1. VALIUM [Suspect]
     Indication: DRUG USE FOR UNKNOWN INDICATION
     Dosage: IN THE MORNING, LONG TERM DURATION
     Route: 048
  2. FENTANYL [Interacting]
     Indication: FEMUR FRACTURE
     Route: 040
     Dates: start: 20090729
  3. SUFENTA PRESERVATIVE FREE [Interacting]
     Indication: FEMUR FRACTURE
     Route: 041
     Dates: start: 20090729, end: 20090729
  4. PROPOFOL [Interacting]
     Indication: FEMUR FRACTURE
     Route: 041
     Dates: start: 20090729
  5. MORPHINE [Interacting]
     Indication: FEMUR FRACTURE
     Dosage: DOSE IN AMBULANCE: 5X2 MG, DOSE IN EMERGENCY DEPARTMENT: 10 MG
     Route: 040
     Dates: start: 20090729
  6. MEPRONIZINE [Interacting]
     Indication: DRUG USE FOR UNKNOWN INDICATION
     Dosage: IN THE EVENING, LONG TERM DURATION
     Route: 048
  7. DEROXAT [Interacting]
     Indication: DRUG USE FOR UNKNOWN INDICATION
     Dosage: IN THE MORNING, LONG TERM DURATION
     Route: 048
  8. TOLVON [Interacting]
     Indication: DRUG USE FOR UNKNOWN INDICATION
     Dosage: IN THE MORNING, LONG TERM DURATION
     Route: 048
  9. TORECAN [Interacting]
     Indication: DRUG USE FOR UNKNOWN INDICATION
     Dosage: IN THE MORNING, LONG TERM DURATION
     Route: 048
  10. TRAMAL [Interacting]
     Indication: DRUG USE FOR UNKNOWN INDICATION
     Dosage: LONG TERM DURATION
     Route: 048
  11. INDERAL [Concomitant]
     Dosage: IN THE MORNING, LONG TERM DURATION
     Route: 048
  12. PRAVASTATIN [Concomitant]
     Dosage: IN THE EVENING, LONG TERM DURATION
     Route: 048
  13. BUSCOPAN [Concomitant]
     Dosage: IN THE MORNING
     Route: 048
  14. EUTHYROX [Concomitant]
     Dosage: IN THE MORNING
     Route: 048
  15. DIOVAN HCT [Concomitant]
     Dosage: IN THE MORNING, STRENGTH 160/12.5,  LONG TERM DURATION
     Route: 048
  16. ASPIRIN [Concomitant]
     Dosage: IN THE MORNING
  17. CONDROSULF [Concomitant]
     Dosage: LONG TERM
     Route: 048

REACTIONS (4)
  - COMA [None]
  - DRUG INTERACTION [None]
  - RESPIRATORY ACIDOSIS [None]
  - RESPIRATORY FAILURE [None]
